FAERS Safety Report 9687972 (Version 1)
Quarter: 2013Q4

REPORT INFORMATION
  Report Type: Spontaneous
  Country: GB (occurrence: None)
  Receive Date: 20131112
  Receipt Date: 20131112
  Transmission Date: 20140711
  Serious: No
  Sender: FDA-Public Use
  Company Number: 1997965

PATIENT
  Sex: Male

DRUGS (5)
  1. VINCRISTINE SULFATE [Suspect]
     Indication: B-CELL LYMPHOMA
  2. DOXORUBICIN HYDROCHLORIDE [Suspect]
  3. RITUXIMAB [Suspect]
  4. CYCLOPHOSPHAMIDE [Suspect]
  5. PREDNISOLONE [Suspect]

REACTIONS (1)
  - Immunoglobulins decreased [None]
